FAERS Safety Report 9363494 (Version 2)
Quarter: 2013Q3

REPORT INFORMATION
  Report Type: Spontaneous
  Country: US (occurrence: US)
  Receive Date: 20130624
  Receipt Date: 20130717
  Transmission Date: 20140515
  Serious: Yes (Other)
  Sender: FDA-Public Use
  Company Number: US-ELI_LILLY_AND_COMPANY-US201306005635

PATIENT
  Sex: Female
  Weight: 123.36 kg

DRUGS (5)
  1. ZYPREXA [Suspect]
     Indication: BIPOLAR DISORDER
     Dosage: 10 MG, EACH EVENING
     Route: 048
     Dates: start: 20121015
  2. EFFEXOR XR [Concomitant]
     Dosage: 1 DF, UNKNOWN
  3. BUSPAR [Concomitant]
     Dosage: 1 DF, UNKNOWN
  4. TRAZODONE [Concomitant]
     Dosage: 1 DF, UNKNOWN
  5. XANAX [Concomitant]
     Dosage: 1 DF, UNKNOWN

REACTIONS (2)
  - Weight increased [Not Recovered/Not Resolved]
  - Increased appetite [Unknown]
